FAERS Safety Report 8900891 (Version 1)
Quarter: 2012Q4

REPORT INFORMATION
  Report Type: Report from Study
  Country: GB (occurrence: GB)
  Receive Date: 20121109
  Receipt Date: 20121109
  Transmission Date: 20130627
  Serious: Yes (Hospitalization)
  Sender: FDA-Public Use
  Company Number: GB-ROCHE-1150738

PATIENT
  Sex: Female

DRUGS (5)
  1. RITUXIMAB [Suspect]
     Indication: RHEUMATOID ARTHRITIS
     Route: 065
     Dates: start: 20091203
  2. METHOTREXATE [Concomitant]
     Dosage: 14 days
     Route: 048
  3. HYDROXYCHLOROQUINE [Concomitant]
     Route: 048
     Dates: start: 200701
  4. PREDNISOLONE [Concomitant]
     Dosage: 14 days,On Monday, Wednesday and Friday
     Route: 048
  5. PREDNISOLONE [Concomitant]
     Dosage: 14 days, On Tuesday, Saturday and Sunday
     Route: 048

REACTIONS (3)
  - Bronchiectasis [Unknown]
  - Bacterial disease carrier [Recovering/Resolving]
  - Condition aggravated [Recovering/Resolving]
